FAERS Safety Report 6369999-0 (Version None)
Quarter: 2009Q3

REPORT INFORMATION
  Report Type: 
  Country: None (occurrence: None)
  Receive Date: 20090923
  Receipt Date: 20070724
  Transmission Date: 20100115
  Serious: Yes (Disabling)
  Sender: FDA-Public Use
  Company Number: US-ASTRAZENECA-2006UW04304

PATIENT
  Sex: Female
  Weight: 106.1 kg

DRUGS (15)
  1. SEROQUEL [Suspect]
     Route: 048
  2. TENORMIN [Concomitant]
     Dates: start: 19960807
  3. NAVANE [Concomitant]
  4. BENTYL [Concomitant]
  5. FLAGYL [Concomitant]
  6. ANAPROX DS [Concomitant]
     Dates: start: 19971209
  7. ACCUPRIL [Concomitant]
  8. LIBRAX [Concomitant]
     Dates: start: 19970212
  9. RISPERDAL [Concomitant]
     Dates: start: 19980915
  10. HABITROL [Concomitant]
  11. PEPCID [Concomitant]
     Dates: start: 19990507
  12. TIAZAC [Concomitant]
  13. VERELAN [Concomitant]
     Dates: start: 20000504
  14. GLUCOPHAGE [Concomitant]
     Dates: start: 20010915
  15. TRIAMCINOLONE [Concomitant]

REACTIONS (1)
  - DIABETES MELLITUS [None]
